FAERS Safety Report 6460296-1 (Version None)
Quarter: 2009Q4

REPORT INFORMATION
  Report Type: 
  Country: None (occurrence: None)
  Receive Date: 20091130
  Receipt Date: 20091120
  Transmission Date: 20100525
  Serious: Yes (Other)
  Sender: FDA-Public Use
  Company Number: PHHY2009DK51939

PATIENT
  Sex: Male

DRUGS (1)
  1. VOLTAREN [Suspect]
     Indication: OSTEOPOROSIS
     Dosage: UNK

REACTIONS (9)
  - BLOOD URINE PRESENT [None]
  - COUGH [None]
  - EOSINOPHILIA [None]
  - HYPERSENSITIVITY [None]
  - HYPERTENSION [None]
  - LYMPHADENITIS [None]
  - LYMPHADENOPATHY [None]
  - OEDEMA PERIPHERAL [None]
  - PROTEINURIA [None]
